FAERS Safety Report 4372156-0 (Version None)
Quarter: 2004Q2

REPORT INFORMATION
  Report Type: 
  Country: None (occurrence: None)
  Receive Date: 20040607
  Receipt Date: 20040525
  Transmission Date: 20050107
  Serious: Yes (Other)
  Sender: FDA-Public Use
  Company Number: US-GLAXOSMITHKLINE-A0512663B

PATIENT
  Age: 32 Year
  Sex: Female

DRUGS (2)
  1. COMBIVIR [Suspect]
     Indication: HIV INFECTION
     Dosage: 1TAB TWICE PER DAY
     Route: 048
     Dates: start: 20030401
  2. ATAZANAVIR [Concomitant]
     Indication: HIV INFECTION
     Dates: start: 20030724

REACTIONS (4)
  - ABORTION INDUCED [None]
  - ALPHA 1 FOETOPROTEIN INCREASED [None]
  - OLIGOHYDRAMNIOS [None]
  - ULTRASOUND SCAN ABNORMAL [None]
